FAERS Safety Report 10758550 (Version 4)
Quarter: 2015Q1

REPORT INFORMATION
  Report Type: Spontaneous
  Country: JP (occurrence: JP)
  Receive Date: 20150203
  Receipt Date: 20150319
  Transmission Date: 20150721
  Serious: Yes (Other)
  Sender: FDA-Public Use
  Company Number: JP-ELI_LILLY_AND_COMPANY-JP201502000516

PATIENT
  Weight: 2 kg

DRUGS (14)
  1. ADCIRCA [Suspect]
     Active Substance: TADALAFIL
     Indication: PRODUCT USED FOR UNKNOWN INDICATION
     Dosage: 40 MG, QD
     Route: 064
     Dates: start: 20140117
  2. HEPARIN [Concomitant]
     Active Substance: HEPARIN SODIUM
     Route: 064
  3. CARELOAD [Concomitant]
     Active Substance: BERAPROST SODIUM
     Indication: PRODUCT USED FOR UNKNOWN INDICATION
     Dosage: 360 UG, OTHER
     Route: 064
  4. EPOPROSTENOL [Concomitant]
     Active Substance: EPOPROSTENOL
     Route: 064
  5. FENTANYL. [Concomitant]
     Active Substance: FENTANYL
     Indication: EPIDURAL ANALGESIA
     Route: 064
  6. ROPIVACAINE [Concomitant]
     Active Substance: ROPIVACAINE
     Indication: EPIDURAL ANALGESIA
     Route: 064
  7. CARELOAD [Concomitant]
     Active Substance: BERAPROST SODIUM
     Indication: PRODUCT USED FOR UNKNOWN INDICATION
     Dosage: 360 UG, OTHER
     Route: 064
  8. EPOPROSTENOL [Concomitant]
     Active Substance: EPOPROSTENOL
     Route: 064
  9. ROPIVACAINE [Concomitant]
     Active Substance: ROPIVACAINE
     Indication: EPIDURAL ANALGESIA
     Route: 064
  10. ADCIRCA [Suspect]
     Active Substance: TADALAFIL
     Indication: PRODUCT USED FOR UNKNOWN INDICATION
     Dosage: 40 MG, QD
     Route: 064
     Dates: start: 20140117
  11. THYRADIN S [Concomitant]
     Active Substance: LEVOTHYROXINE SODIUM
     Indication: HYPOTHYROIDISM
     Dosage: 50 UG, OTHER
     Route: 064
     Dates: start: 20140106
  12. HEPARIN [Concomitant]
     Active Substance: HEPARIN SODIUM
     Route: 064
  13. FENTANYL. [Concomitant]
     Active Substance: FENTANYL
     Indication: EPIDURAL ANALGESIA
     Route: 064
  14. THYRADIN S [Concomitant]
     Active Substance: LEVOTHYROXINE SODIUM
     Indication: HYPOTHYROIDISM
     Dosage: 50 UG, OTHER
     Route: 064
     Dates: start: 20140106

REACTIONS (3)
  - Foetal exposure during pregnancy [Recovered/Resolved]
  - Premature baby [Unknown]
  - Maternal exposure during delivery [Unknown]

NARRATIVE: CASE EVENT DATE: 20140117
